FAERS Safety Report 8192738-8 (Version None)
Quarter: 2012Q1

REPORT INFORMATION
  Report Type: 
  Country: None (occurrence: None)
  Receive Date: 20120308
  Receipt Date: 20120302
  Transmission Date: 20120608
  Serious: Yes (Other)
  Sender: FDA-Public Use
  Company Number: US-PFIZER INC-HQWYE464327JUL04

PATIENT
  Sex: Female
  Weight: 79.365 kg

DRUGS (2)
  1. ORTHO CYCLEN-28 [Suspect]
     Indication: HORMONE REPLACEMENT THERAPY
     Dosage: UNK
     Dates: start: 19961201, end: 19981028
  2. PREMPRO [Suspect]
     Indication: HORMONE REPLACEMENT THERAPY
     Dosage: 2.5MG/0.625MG
     Route: 048
     Dates: start: 19981028, end: 20000113

REACTIONS (1)
  - BREAST CANCER [None]
